FAERS Safety Report 6418775-9 (Version None)
Quarter: 2009Q4

REPORT INFORMATION
  Report Type: 
  Country: None (occurrence: None)
  Receive Date: 20091026
  Receipt Date: 20091014
  Transmission Date: 20100525
  Serious: Yes (Other)
  Sender: FDA-Public Use
  Company Number: 2009AC000074

PATIENT
  Age: 84 Year
  Sex: Female

DRUGS (6)
  1. DIGOXIN [Suspect]
     Dosage: 0.125 MG; QD; PO
     Route: 048
  2. WARFARIN SODIUM [Concomitant]
  3. FUROSEMIDE [Concomitant]
  4. PREMARIN [Concomitant]
  5. NITROGLYCERIN [Concomitant]
  6. DILTIAZEM [Concomitant]

REACTIONS (13)
  - ANGINA PECTORIS [None]
  - CARDIAC VALVE DISEASE [None]
  - CHEST PAIN [None]
  - COLONIC POLYP [None]
  - DIZZINESS [None]
  - DRUG HYPERSENSITIVITY [None]
  - DYSPNOEA [None]
  - ECONOMIC PROBLEM [None]
  - MULTIPLE INJURIES [None]
  - PALPITATIONS [None]
  - RIGHT VENTRICULAR SYSTOLIC PRESSURE INCREASED [None]
  - SURGERY [None]
  - UNEVALUABLE EVENT [None]
